FAERS Safety Report 4426338-X (Version None)
Quarter: 2004Q3

REPORT INFORMATION
  Report Type: 
  Country: None (occurrence: None)
  Receive Date: 20040811
  Receipt Date: 20040803
  Transmission Date: 20050211
  Serious: Yes (Disabling)
  Sender: FDA-Public Use
  Company Number: 2004227005GB

PATIENT
  Age: 53 Year
  Sex: Female
  Weight: 59 kg

DRUGS (4)
  1. CABERGOLINE [Suspect]
     Indication: PARKINSON'S DISEASE
     Dosage: 4 MG/DAY, ORAL
     Route: 048
     Dates: start: 20010601, end: 20040524
  2. PREDNISOLONE [Concomitant]
  3. AMANTADINE (AMANTADINE) [Concomitant]
  4. SINEMET [Concomitant]

REACTIONS (1)
  - BRONCHOSTENOSIS [None]
